FAERS Safety Report 14753070 (Version 1)
Quarter: 2018Q2

REPORT INFORMATION
  Report Type: Spontaneous
  Country: US (occurrence: US)
  Receive Date: 20180412
  Receipt Date: 20180412
  Transmission Date: 20180711
  Serious: No
  Sender: FDA-Public Use
  Company Number: US-MYLANLABS-2018M1018623

PATIENT
  Age: 48 Year
  Sex: Female

DRUGS (8)
  1. FIORICET [Concomitant]
     Active Substance: ACETAMINOPHEN\BUTALBITAL\CAFFEINE
     Indication: MIGRAINE
     Dosage: UNK
  2. PROPANOLOL                         /00030001/ [Concomitant]
     Active Substance: PROPRANOLOL HYDROCHLORIDE
     Indication: MIGRAINE
     Dosage: 80 MG, BID
     Dates: start: 2006
  3. KETOROLAC [Concomitant]
     Active Substance: KETOROLAC\KETOROLAC TROMETHAMINE
     Indication: MIGRAINE
     Dosage: 10 MG, 1TABLET, 4 HOURS AFTER TAKING FIORICET AS NEEDED IF FIORICET DOES NOT WORK
     Dates: start: 2006
  4. LAMICTAL [Concomitant]
     Active Substance: LAMOTRIGINE
     Indication: MIGRAINE
     Dosage: 100 MG, BID
     Dates: start: 2006
  5. ESOMEPRAZOLE MAGNESIUM D/R [Suspect]
     Active Substance: ESOMEPRAZOLE MAGNESIUM
     Indication: DYSPEPSIA
     Dosage: 40 MG, (ONCE OR TWICE PER DAY )
     Route: 048
  6. IMMUNOGLOBULIN                     /00025201/ [Concomitant]
     Active Substance: HUMAN IMMUNOGLOBULIN G
     Indication: IMMUNOGLOBULINS DECREASED
     Dosage: ONCE EVERY 28 DAYS
  7. RELPAX [Suspect]
     Active Substance: ELETRIPTAN HYDROBROMIDE
     Indication: MIGRAINE
     Dosage: TWO DOSES OF ONE 40MG TABLET
     Route: 065
     Dates: start: 201712, end: 201712
  8. PREVACID [Concomitant]
     Active Substance: LANSOPRAZOLE
     Indication: HYPERCHLORHYDRIA
     Dosage: 1 DF, QD (1TABLET DAILY WITH GENER IC NEXIUM )
     Route: 048

REACTIONS (2)
  - No adverse event [Unknown]
  - Drug effect incomplete [Unknown]
